FAERS Safety Report 10362295 (Version 2)
Quarter: 2014Q4

REPORT INFORMATION
  Report Type: Spontaneous
  Country: IT (occurrence: IT)
  Receive Date: 20140805
  Receipt Date: 20141111
  Transmission Date: 20150528
  Serious: Yes (Hospitalization)
  Sender: FDA-Public Use
  Company Number: IT-PFIZER INC-2014215711

PATIENT
  Age: 63 Year
  Sex: Female

DRUGS (7)
  1. METFONORM [Concomitant]
     Dosage: 3 DF, UNK
  2. TORVAST [Suspect]
     Active Substance: ATORVASTATIN
     Indication: MYOCARDIAL INFARCTION
     Dosage: 80 MG, DAILY
     Route: 048
     Dates: start: 20140611, end: 20140613
  3. QUARK [Concomitant]
     Active Substance: RAMIPRIL
     Dosage: 1 DF, UNK
     Dates: start: 20140611
  4. DUOPLAVIN [Concomitant]
     Active Substance: ASPIRIN\CLOPIDOGREL
     Dosage: 1 DF, UNK
     Route: 048
     Dates: start: 20140611
  5. CONGESCOR [Concomitant]
     Active Substance: BISOPROLOL
     Dosage: 1 DF, UNK
     Dates: start: 20140611
  6. ESKIM [Suspect]
     Active Substance: OMEGA-3 FATTY ACIDS
     Indication: MYOCARDIAL INFARCTION
     Dosage: 3 DF, DAILY
     Route: 048
     Dates: start: 20140611, end: 20140613
  7. LASIX [Concomitant]
     Active Substance: FUROSEMIDE
     Dosage: 1 DF, UNK

REACTIONS (3)
  - Pruritus [Recovered/Resolved]
  - Rash generalised [Recovered/Resolved]
  - Urticaria [Recovered/Resolved]

NARRATIVE: CASE EVENT DATE: 20140612
